FAERS Safety Report 9395939 (Version 1)
Quarter: 2013Q3

REPORT INFORMATION
  Report Type: Report from Study
  Country: GB (occurrence: GB)
  Receive Date: 20130711
  Receipt Date: 20130711
  Transmission Date: 20140515
  Serious: Yes (Hospitalization)
  Sender: FDA-Public Use
  Company Number: GB-GLAXOSMITHKLINE-B0905741A

PATIENT
  Age: 83 Year
  Sex: Female
  Weight: 50.9 kg

DRUGS (10)
  1. OFATUMUMAB [Suspect]
     Indication: CHRONIC LYMPHOCYTIC LEUKAEMIA
     Dosage: 1300MG PER DAY
     Route: 042
     Dates: start: 20130514
  2. BENDAMUSTINE [Suspect]
     Indication: CHRONIC LYMPHOCYTIC LEUKAEMIA
     Dosage: 210MG PER DAY
     Route: 042
     Dates: start: 20130514
  3. PARACETAMOL [Concomitant]
     Dosage: 1G PER DAY
     Route: 048
     Dates: start: 20130514
  4. CHLORPHENIRAMINE [Concomitant]
     Dosage: 10MG PER DAY
     Route: 042
     Dates: start: 20130514
  5. PREDNISOLONE [Concomitant]
  6. ALLOPURINOL [Concomitant]
     Dosage: 300MG PER DAY
     Route: 048
     Dates: start: 20130514
  7. METOCLOPRAMIDE [Concomitant]
     Dosage: 10MG PER DAY
     Route: 048
  8. ACICLOVIR [Concomitant]
     Dosage: 20MG PER DAY
     Route: 048
     Dates: start: 20130514
  9. G-CSF [Concomitant]
  10. HYDROCORTISONE [Concomitant]
     Dosage: 200MG PER DAY
     Route: 042
     Dates: start: 20130514

REACTIONS (1)
  - Febrile neutropenia [Recovered/Resolved]
